FAERS Safety Report 5261900-6 (Version None)
Quarter: 2007Q1

REPORT INFORMATION
  Report Type: 
  Country: None (occurrence: None)
  Receive Date: 20070310
  Receipt Date: 20070228
  Transmission Date: 20070707
  Serious: Yes (Other)
  Sender: FDA-Public Use
  Company Number: 2006UW22976

PATIENT
  Sex: Female
  Weight: 86.4 kg

DRUGS (3)
  1. SEROQUEL [Suspect]
     Indication: DEPRESSION
     Route: 048
     Dates: start: 20030301
  2. LEXAPRO [Concomitant]
     Indication: PSYCHOTIC DISORDER
     Dates: start: 20060101
  3. CELEXA [Concomitant]
     Indication: PSYCHOTIC DISORDER
     Dates: start: 20030101

REACTIONS (4)
  - DIABETES MELLITUS NON-INSULIN-DEPENDENT [None]
  - DIABETIC KETOACIDOSIS [None]
  - PANCREATITIS [None]
  - TARDIVE DYSKINESIA [None]
